FAERS Safety Report 25256511 (Version 1)
Quarter: 2025Q2

REPORT INFORMATION
  Report Type: Report from Study
  Country: US (occurrence: US)
  Receive Date: 20250430
  Receipt Date: 20250430
  Transmission Date: 20250717
  Serious: Yes (Hospitalization, Other)
  Sender: ABBVIE
  Company Number: US-ABBVIE-6212880

PATIENT
  Age: 24 Year
  Sex: Female

DRUGS (1)
  1. HUMIRA [Suspect]
     Active Substance: ADALIMUMAB
     Indication: Crohn^s disease
     Route: 058
     Dates: start: 20230403

REACTIONS (9)
  - Pharyngeal haemorrhage [Unknown]
  - Pneumonia [Recovered/Resolved]
  - Blood sodium decreased [Recovered/Resolved]
  - Infusion site infection [Unknown]
  - Pain [Unknown]
  - Cellulitis [Unknown]
  - Thrombosis [Unknown]
  - Vomiting [Unknown]
  - Staphylococcal infection [Unknown]

NARRATIVE: CASE EVENT DATE: 20250328
